FAERS Safety Report 7216044-0 (Version None)
Quarter: 2011Q1

REPORT INFORMATION
  Report Type: 
  Country: None (occurrence: None)
  Receive Date: 20110107
  Receipt Date: 20101227
  Transmission Date: 20110831
  Serious: Yes (Hospitalization)
  Sender: FDA-Public Use
  Company Number: JP-CELGENEUS-087-21880-10091772

PATIENT
  Sex: Male
  Weight: 76.5 kg

DRUGS (14)
  1. SELBEX [Concomitant]
     Indication: PROPHYLAXIS
     Route: 048
     Dates: start: 20100820, end: 20101212
  2. REVLIMID [Suspect]
     Route: 048
     Dates: start: 20101015, end: 20101104
  3. LENADEX [Suspect]
     Indication: MULTIPLE MYELOMA
     Route: 048
     Dates: start: 20100820, end: 20100908
  4. METHYCOBAL [Concomitant]
     Indication: PROPHYLAXIS
     Route: 048
     Dates: start: 20100820, end: 20101212
  5. LASIX [Concomitant]
     Route: 048
     Dates: start: 20100820, end: 20101212
  6. PARIET [Concomitant]
     Indication: PROPHYLAXIS
     Route: 048
     Dates: start: 20100820, end: 20101212
  7. ZOMETA [Concomitant]
     Indication: MULTIPLE MYELOMA
     Route: 041
     Dates: start: 20100820, end: 20101212
  8. BAKTAR [Concomitant]
     Indication: PROPHYLAXIS
     Route: 048
     Dates: start: 20100820, end: 20101212
  9. REVLIMID [Suspect]
     Route: 048
     Dates: start: 20101115, end: 20101205
  10. LENADEX [Suspect]
     Route: 048
     Dates: start: 20101015, end: 20101103
  11. LENADEX [Suspect]
     Route: 048
     Dates: start: 20101115, end: 20101204
  12. JUVELA [Concomitant]
     Indication: PROPHYLAXIS
     Route: 048
     Dates: start: 20100820, end: 20101212
  13. REVLIMID [Suspect]
     Indication: MULTIPLE MYELOMA
     Route: 048
     Dates: start: 20100820, end: 20100909
  14. ALLOPURINOL [Concomitant]
     Route: 048
     Dates: start: 20100820, end: 20101212

REACTIONS (2)
  - NASOPHARYNGITIS [None]
  - DELIRIUM [None]
